FAERS Safety Report 7024992-X (Version None)
Quarter: 2010Q4

REPORT INFORMATION
  Report Type: 
  Country: None (occurrence: None)
  Receive Date: 20101001
  Receipt Date: 20100813
  Transmission Date: 20110411
  Serious: No
  Sender: FDA-Public Use
  Company Number: US-NOVEN-10US001364

PATIENT
  Age: 73 Year
  Sex: Male

DRUGS (2)
  1. FENTANYL [Suspect]
     Indication: PAIN
     Dosage: 50 UG/HOUR
     Dates: start: 20100728
  2. UNKNOWN [Concomitant]

REACTIONS (1)
  - INADEQUATE ANALGESIA [None]
